FAERS Safety Report 9753697 (Version 2)
Quarter: 2013Q4

REPORT INFORMATION
  Report Type: Spontaneous
  Country: IN (occurrence: IN)
  Receive Date: 20131213
  Receipt Date: 20131220
  Transmission Date: 20140711
  Serious: Yes (Hospitalization)
  Sender: FDA-Public Use
  Company Number: PHHY2013IN142596

PATIENT
  Age: 18 Hour
  Sex: Female
  Weight: 3.8 kg

DRUGS (1)
  1. VALPROIC ACID [Suspect]
     Route: 064

REACTIONS (18)
  - Foetal anticonvulsant syndrome [Unknown]
  - Foot deformity [Unknown]
  - Right ventricular hypertrophy [Unknown]
  - Skin disorder [Unknown]
  - Arrhythmia supraventricular [Unknown]
  - Low set ears [Unknown]
  - Dysmorphism [Unknown]
  - Microphthalmos [Unknown]
  - High arched palate [Unknown]
  - Cardiac failure [Unknown]
  - Cyanosis neonatal [Unknown]
  - Lung disorder [Unknown]
  - Cardiomegaly [Unknown]
  - Respiratory distress [Unknown]
  - Anal skin tags [Unknown]
  - Hand deformity [Unknown]
  - Persistent left superior vena cava [Unknown]
  - Hepatomegaly [Unknown]
